FAERS Safety Report 9016854 (Version 2)
Quarter: 2013Q1

REPORT INFORMATION
  Report Type: Spontaneous
  Country: FR (occurrence: FR)
  Receive Date: 20130117
  Receipt Date: 20130306
  Transmission Date: 20140127
  Serious: Yes (Death)
  Sender: FDA-Public Use
  Company Number: FR-ELI_LILLY_AND_COMPANY-FR201301001742

PATIENT
  Age: 44 Year
  Sex: Male

DRUGS (1)
  1. FORSTEO [Suspect]
     Route: 058

REACTIONS (2)
  - Completed suicide [Fatal]
  - Spinal fracture [Unknown]
